FAERS Safety Report 6689397-X (Version None)
Quarter: 2010Q2

REPORT INFORMATION
  Report Type: 
  Country: None (occurrence: None)
  Receive Date: 20100419
  Receipt Date: 20100419
  Transmission Date: 20101027
  Serious: Yes (Hospitalization)
  Sender: FDA-Public Use
  Company Number: None

PATIENT
  Age: 83 Year
  Sex: Male
  Weight: 101.7 kg

DRUGS (1)
  1. GENTUZUMAB [Suspect]
     Indication: ACUTE MYELOID LEUKAEMIA
     Dosage: IV
     Route: 042
     Dates: start: 20100415, end: 20100415

REACTIONS (7)
  - ASTHENIA [None]
  - CARDIO-RESPIRATORY ARREST [None]
  - CHILLS [None]
  - LOSS OF CONSCIOUSNESS [None]
  - PYREXIA [None]
  - SYNCOPE [None]
  - TRANSFUSION REACTION [None]
